FAERS Safety Report 16642726 (Version 1)
Quarter: 2019Q3

REPORT INFORMATION
  Report Type: Spontaneous
  Country: US (occurrence: US)
  Receive Date: 20190614
  Receipt Date: 20190614
  Transmission Date: 20191004
  Serious: Yes (Death)
  Sender: FDA-Public Use
  Company Number: None

PATIENT
  Age: 62 Year
  Sex: Male
  Weight: 106.59 kg

DRUGS (4)
  1. VALSARTAN. [Suspect]
     Active Substance: VALSARTAN
     Indication: CARDIAC DISORDER
     Dosage: ?          QUANTITY:1 DF DOSAGE FORM;?
     Route: 048
     Dates: start: 201608, end: 20180718
  2. LOSARTAN POTASSIUM 50 MG ORAL TABLET [Concomitant]
  3. VALSARTAN. [Suspect]
     Active Substance: VALSARTAN
     Indication: HYPERTENSION
     Dosage: ?          QUANTITY:1 DF DOSAGE FORM;?
     Route: 048
     Dates: start: 201608, end: 20180718
  4. HYDROCHLOROTHIAZIDE 12.5 MG ORAL CAPSULE [Concomitant]

REACTIONS (3)
  - Small intestine carcinoma [None]
  - Hepatic cancer [None]
  - Hepatic failure [None]

NARRATIVE: CASE EVENT DATE: 20171004
